FAERS Safety Report 17195237 (Version 1)
Quarter: 2020Q3

REPORT INFORMATION
  Report Type: Spontaneous
  Country: IT (occurrence: IT)
  Receive Date: 20191224
  Receipt Date: 20191224
  Transmission Date: 20201104
  Serious: Yes (Hospitalization, Other)
  Sender: FDA-Public Use
  Company Number: IT-ROCHE-2499583

PATIENT
  Age: 30 Year
  Sex: Male
  Weight: 68 kg

DRUGS (4)
  1. ALECTINIB. [Suspect]
     Active Substance: ALECTINIB
     Indication: LUNG ADENOCARCINOMA
     Route: 065
     Dates: start: 201708, end: 20191017
  2. KEPPRA [Concomitant]
     Active Substance: LEVETIRACETAM
     Route: 065
     Dates: start: 20191017
  3. LORLATINIB [Suspect]
     Active Substance: LORLATINIB
     Indication: LUNG ADENOCARCINOMA
     Route: 048
     Dates: start: 20191121, end: 20191124
  4. CLEXANE [Concomitant]
     Active Substance: ENOXAPARIN SODIUM
     Route: 065
     Dates: start: 20191106

REACTIONS (8)
  - Psychomotor hyperactivity [Recovered/Resolved]
  - Epilepsy [Unknown]
  - Hallucinations, mixed [Recovered/Resolved]
  - Metastases to central nervous system [Unknown]
  - Metastases to meninges [Unknown]
  - Dysphagia [Recovered/Resolved]
  - Delirium [Recovered/Resolved]
  - Paranoid personality disorder [Recovered/Resolved]

NARRATIVE: CASE EVENT DATE: 20191124
